FAERS Safety Report 13288114 (Version 1)
Quarter: 2017Q1

REPORT INFORMATION
  Report Type: Report from Study
  Country: MA (occurrence: MA)
  Receive Date: 20170302
  Receipt Date: 20170302
  Transmission Date: 20170428
  Serious: Yes (Death)
  Sender: FDA-Public Use
  Company Number: MA-BAYER-2017-039250

PATIENT
  Age: 51 Year

DRUGS (1)
  1. ASPIRIN. [Suspect]
     Active Substance: ASPIRIN
     Indication: ANTIPLATELET THERAPY
     Dosage: 75-100 MG/D
     Route: 048

REACTIONS (1)
  - Haemorrhagic stroke [Fatal]
